FAERS Safety Report 4695983-9 (Version None)
Quarter: 2005Q2

REPORT INFORMATION
  Report Type: 
  Country: None (occurrence: None)
  Receive Date: 20050621
  Receipt Date: 20050330
  Transmission Date: 20051028
  Serious: Yes (Hospitalization)
  Sender: FDA-Public Use
  Company Number: PHHO2005JP05413

PATIENT
  Age: 59 Year
  Sex: Male
  Weight: 59 kg

DRUGS (1)
  1. DIOVAN [Suspect]
     Indication: HYPERTENSION
     Dosage: 40 MG, QD
     Route: 048
     Dates: start: 20030630, end: 20031201

REACTIONS (2)
  - EMBOLIC CEREBRAL INFARCTION [None]
  - HEMIPLEGIA [None]
